FAERS Safety Report 6635081-8 (Version None)
Quarter: 2010Q1

REPORT INFORMATION
  Report Type: 
  Country: None (occurrence: None)
  Receive Date: 20100315
  Receipt Date: 20100302
  Transmission Date: 20100710
  Serious: Yes (Hospitalization, Other)
  Sender: FDA-Public Use
  Company Number: PHEH2009US07929

PATIENT
  Sex: Female

DRUGS (16)
  1. ZELNORM [Suspect]
     Dosage: 6 MG, BID
     Dates: start: 20060612
  2. AGGRENOX [Concomitant]
     Dosage: UNK
  3. LIPITOR [Concomitant]
     Dosage: UNK
  4. ESTROTEST [Concomitant]
     Dosage: UNK
  5. TRAZODONE HCL [Concomitant]
     Dosage: 50 MG / SLEEP NIGHTLY
     Route: 048
  6. PROVERA [Concomitant]
     Dosage: 10 MG / DAILY
     Route: 048
  7. FOSAMAX [Concomitant]
     Dosage: 70 MG / WEEKLY
  8. DIAMOX SRC [Concomitant]
     Dosage: 250MG / QD
  9. XANAX [Concomitant]
     Dosage: 0.5 MG / BID-TID
  10. PREVACID [Concomitant]
     Dosage: 30 MG / QD
     Dates: start: 20071213
  11. DIPROLENE [Concomitant]
     Dosage: 0.5 / BID
     Route: 062
  12. ALLEGRA [Concomitant]
     Dosage: 60 MG / BID PRN
     Route: 048
  13. METOPROLOL [Concomitant]
     Indication: HYPERTENSION
     Dosage: 12.5 MG / BID
     Dates: end: 20070718
  14. METOPROLOL [Concomitant]
     Dosage: 25 MG / BID
     Dates: start: 20070718
  15. ENALAPRIL MALEATE [Concomitant]
     Dosage: 10 MG / DAILY
  16. CRESTOR [Concomitant]
     Dosage: UNK

REACTIONS (28)
  - ARTERIAL STENOSIS [None]
  - ARTHRALGIA [None]
  - CEREBROVASCULAR ACCIDENT [None]
  - CHEST DISCOMFORT [None]
  - COLONIC POLYP [None]
  - CONSTIPATION [None]
  - DEPRESSION [None]
  - DIPLOPIA [None]
  - DISTURBANCE IN ATTENTION [None]
  - DIVERTICULUM [None]
  - ECZEMA [None]
  - EMOTIONAL DISTRESS [None]
  - FATIGUE [None]
  - GASTROOESOPHAGEAL REFLUX DISEASE [None]
  - HAEMATOCHEZIA [None]
  - HAEMORRHOIDS [None]
  - HYPERCHOLESTEROLAEMIA [None]
  - HYPERLIPIDAEMIA [None]
  - HYPERTENSION [None]
  - INJURY [None]
  - INSOMNIA [None]
  - IRRITABLE BOWEL SYNDROME [None]
  - MACROCYTOSIS [None]
  - MOLE EXCISION [None]
  - OSTEOPOROSIS [None]
  - PERNICIOUS ANAEMIA [None]
  - POLYPECTOMY [None]
  - VISUAL IMPAIRMENT [None]
